FAERS Safety Report 6727421-6 (Version None)
Quarter: 2010Q2

REPORT INFORMATION
  Report Type: 
  Country: None (occurrence: None)
  Receive Date: 20100517
  Receipt Date: 20100506
  Transmission Date: 20101027
  Serious: Yes (Other)
  Sender: FDA-Public Use
  Company Number: PHHY2009CN58396

PATIENT
  Sex: Female
  Weight: 55 kg

DRUGS (2)
  1. TRILEPTAL [Suspect]
     Indication: FRONTAL LOBE EPILEPSY
     Dosage: 300MG PER NIGHT
     Route: 048
     Dates: start: 20070718
  2. PLAVIX [Concomitant]
     Dosage: UNK

REACTIONS (2)
  - BACK PAIN [None]
  - IGA NEPHROPATHY [None]
